FAERS Safety Report 8539688-2 (Version None)
Quarter: 2012Q3

REPORT INFORMATION
  Report Type: 
  Country: None (occurrence: None)
  Receive Date: 20120726
  Receipt Date: 20111213
  Transmission Date: 20120928
  Serious: No
  Sender: FDA-Public Use
  Company Number: US-ASTRAZENECA-2007UW00739

PATIENT
  Age: 8 Year
  Sex: Male
  Weight: 42.2 kg

DRUGS (22)
  1. SEROQUEL [Suspect]
     Indication: TOURETTE'S DISORDER
     Route: 048
     Dates: start: 20020302, end: 20030102
  2. SEROQUEL [Suspect]
     Route: 048
     Dates: start: 20060130
  3. CLONIDINE HCL [Concomitant]
     Dosage: 1/2 TABLET 9 AM, 11 AND 1 HS
     Dates: start: 20020610
  4. CLONIDINE HCL [Concomitant]
     Dosage: 0.5 MG TABLET 1/2 TABLET TID
     Route: 048
     Dates: start: 20060623
  5. ABILIFY [Concomitant]
     Route: 048
     Dates: start: 20080627
  6. REMERON [Concomitant]
     Dosage: 15 MG TABLET 1/2 TABLET QHS
     Route: 048
     Dates: start: 20060623
  7. REMERON [Concomitant]
     Route: 048
     Dates: start: 20070207
  8. SEROQUEL [Suspect]
     Route: 048
     Dates: start: 20050901
  9. RISPERDAL [Suspect]
     Dosage: .25 MG, .5 MG, 1 MG
     Route: 065
     Dates: start: 20020129, end: 20050410
  10. ABILIFY [Concomitant]
     Route: 048
     Dates: start: 20060623
  11. REMERON [Concomitant]
     Dosage: 15 MG TABLET 1/2 TABLET QHS
     Route: 048
     Dates: start: 20080627
  12. MIRALAX [Concomitant]
     Dates: start: 20070207
  13. STRATTERA [Concomitant]
     Dates: start: 20060130
  14. REMERON [Concomitant]
     Dates: start: 20060130
  15. RITALIN [Concomitant]
     Dosage: 1/2 TABLET 9 AM, 1/2 TABLET 11 AM, 1/2 TABLET EVERY 1500 HR
     Dates: start: 20020610
  16. RISPERDAL [Suspect]
     Route: 065
     Dates: start: 20020610
  17. ABILIFY [Concomitant]
     Dates: start: 20060130
  18. STRATTERA [Concomitant]
     Route: 048
     Dates: start: 20060623
  19. MELATONIN [Concomitant]
     Dates: start: 20060130
  20. MELATONIN [Concomitant]
     Route: 048
     Dates: start: 20060623
  21. CLONIDINE HCL [Concomitant]
     Dates: start: 20060130
  22. ABILIFY [Concomitant]
     Route: 048
     Dates: start: 20070207

REACTIONS (3)
  - BREAST ENLARGEMENT [None]
  - DIABETES MELLITUS [None]
  - GYNAECOMASTIA [None]
